FAERS Safety Report 8088458-0 (Version None)
Quarter: 2012Q1

REPORT INFORMATION
  Report Type: 
  Country: None (occurrence: None)
  Receive Date: 20120128
  Receipt Date: 20110414
  Transmission Date: 20120608
  Serious: No
  Sender: FDA-Public Use
  Company Number: US-ABBOTT-11P-163-0719766-00

PATIENT
  Age: 53 Year
  Sex: Male
  Weight: 88.53 kg

DRUGS (4)
  1. MORPHINE [Concomitant]
     Indication: RHEUMATOID ARTHRITIS
  2. UNKNOWN MEDICATIONS [Concomitant]
     Indication: CARDIAC OPERATION
  3. HUMIRA [Suspect]
     Indication: RHEUMATOID ARTHRITIS
     Dates: start: 20110101
  4. LYRICA [Concomitant]
     Indication: RHEUMATOID ARTHRITIS

REACTIONS (6)
  - ASTHENIA [None]
  - DYSURIA [None]
  - URINARY INCONTINENCE [None]
  - PYREXIA [None]
  - ANXIETY [None]
  - PAIN [None]
